FAERS Safety Report 19884365 (Version 1)
Quarter: 2021Q3

REPORT INFORMATION
  Report Type: Spontaneous
  Country: US (occurrence: US)
  Receive Date: 20210927
  Receipt Date: 20210927
  Transmission Date: 20211014
  Serious: No
  Sender: FDA-Public Use
  Company Number: US-JNJFOC-20210908496

PATIENT
  Age: 66 Year
  Sex: Male
  Weight: 83.99 kg

DRUGS (1)
  1. XARELTO [Suspect]
     Active Substance: RIVAROXABAN
     Indication: THROMBOSIS PROPHYLAXIS
     Route: 048

REACTIONS (4)
  - Eye pain [Unknown]
  - Eye injury [Unknown]
  - Eye inflammation [Unknown]
  - Skin laceration [Unknown]
